FAERS Safety Report 9099496 (Version 1)
Quarter: 2013Q1

REPORT INFORMATION
  Report Type: Spontaneous
  Country: US (occurrence: US)
  Receive Date: 20130214
  Receipt Date: 20130214
  Transmission Date: 20140127
  Serious: Yes (Life-Threatening, Hospitalization, Other)
  Sender: FDA-Public Use
  Company Number: US-INCYTE CORPORATION-2012IN002277

PATIENT
  Age: 75 Year
  Sex: Female
  Weight: 44.13 kg

DRUGS (8)
  1. JAKAFI [Suspect]
     Indication: MYELOFIBROSIS
     Dosage: 10 MG, BID
     Route: 048
     Dates: start: 2012, end: 20121031
  2. LASIX [Concomitant]
     Dosage: 20 MG, QD
  3. NITROGLYCERIN [Concomitant]
  4. TYLENOL [Concomitant]
  5. AMBIEN [Concomitant]
  6. ALUMINUM, MAG HYDROXIDE PLUS SIMETHICONE [Concomitant]
  7. RAMIPRIL [Concomitant]
  8. CARVEDILOL [Concomitant]

REACTIONS (5)
  - Cardiomyopathy [Not Recovered/Not Resolved]
  - Ventricular tachycardia [Recovered/Resolved]
  - Syncope [Recovered/Resolved]
  - Pleural effusion [Unknown]
  - Platelet count decreased [Unknown]
